FAERS Safety Report 23795696 (Version 1)
Quarter: 2024Q2

REPORT INFORMATION
  Report Type: Spontaneous
  Country: US (occurrence: None)
  Receive Date: 20240426
  Receipt Date: 20240426
  Transmission Date: 20240716
  Serious: Yes (Hospitalization)
  Sender: FDA-Public Use
  Company Number: None

PATIENT
  Age: 76 Year
  Sex: Male

DRUGS (2)
  1. NUPLAZID [Suspect]
     Active Substance: PIMAVANSERIN TARTRATE
     Indication: Parkinson^s disease
     Dosage: 34MG DAILY ORAL
     Route: 048
     Dates: start: 20230309
  2. NUPLAZID [Concomitant]
     Active Substance: PIMAVANSERIN TARTRATE
     Dates: start: 20230308

REACTIONS (4)
  - Diarrhoea [None]
  - Vomiting [None]
  - Abdominal pain upper [None]
  - Muscle disorder [None]

NARRATIVE: CASE EVENT DATE: 20240328
